FAERS Safety Report 24552162 (Version 3)
Quarter: 2024Q4

REPORT INFORMATION
  Report Type: Report from Study
  Country: IE (occurrence: IE)
  Receive Date: 20241026
  Receipt Date: 20241203
  Transmission Date: 20250115
  Serious: Yes (Other)
  Sender: AMGEN
  Company Number: IE-AMGEN-IRLSL2024207203

PATIENT
  Age: 44 Year
  Sex: Female

DRUGS (7)
  1. NEULASTA [Suspect]
     Active Substance: PEGFILGRASTIM
     Indication: Product used for unknown indication
     Dosage: 6 MILLIGRAM, AS PER PRESCRIPTION
     Route: 058
     Dates: start: 20240813
  2. NEULASTA [Suspect]
     Active Substance: PEGFILGRASTIM
     Dosage: 6 MILLIGRAM, AS PER PRESCRIPTION (LAST INJECTION)
     Route: 058
  3. DEXAMETHASONE [Concomitant]
     Active Substance: DEXAMETHASONE
     Indication: Product used for unknown indication
     Dosage: 12 MILLIGRAM
     Route: 050
  4. MYCOSTATIN [Concomitant]
     Active Substance: NYSTATIN
     Indication: Product used for unknown indication
     Dosage: 1 MILLIGRAM
     Route: 050
  5. ONDANSETRON [Concomitant]
     Active Substance: ONDANSETRON
     Dosage: 8 MILLIGRAM
     Route: 050
  6. CYCLIZINE [Concomitant]
     Active Substance: CYCLIZINE
     Dosage: 50 MILLIGRAM
     Route: 050
  7. EMEND [Concomitant]
     Active Substance: APREPITANT
     Dosage: 12 MILLIGRAM
     Route: 050

REACTIONS (5)
  - Pyrexia [Unknown]
  - Accidental exposure to product [Unknown]
  - Incorrect dose administered by device [Unknown]
  - Device issue [Unknown]
  - Anticoagulant therapy [Unknown]

NARRATIVE: CASE EVENT DATE: 20240101
